FAERS Safety Report 8394764-2 (Version None)
Quarter: 2012Q2

REPORT INFORMATION
  Report Type: 
  Country: None (occurrence: None)
  Receive Date: 20120530
  Receipt Date: 20111125
  Transmission Date: 20120825
  Serious: Yes (Other)
  Sender: FDA-Public Use
  Company Number: IT-ASTELLAS-2011EU008656

PATIENT
  Sex: Female

DRUGS (6)
  1. FOLINA [Suspect]
     Indication: ANAEMIA
     Dosage: 5 MG, UNKNOWN/D
     Route: 048
     Dates: start: 20111004, end: 20111026
  2. MERREM [Suspect]
     Indication: PYREXIA
     Dosage: 6 G, UNKNOWN/D
     Route: 042
     Dates: start: 20111023, end: 20111107
  3. ACYCLOVIR [Suspect]
     Indication: ANTIVIRAL PROPHYLAXIS
     Dosage: 2 G, UNKNOWN/D
     Route: 042
     Dates: start: 20111004, end: 20111121
  4. MYCAMINE [Suspect]
     Indication: ANTIFUNGAL PROPHYLAXIS
     Dosage: 50 MG, UNKNOWN/D
     Route: 042
     Dates: start: 20111004, end: 20111107
  5. VANCOMYCIN [Suspect]
     Indication: ANTIBIOTIC PROPHYLAXIS
     Dosage: 2 G, UNKNOWN/D
     Route: 042
     Dates: start: 20111004, end: 20111102
  6. BECOZYM [Suspect]
     Indication: ANAEMIA
     Dosage: 10 MG, UNKNOWN/D
     Route: 048
     Dates: start: 20111004, end: 20111026

REACTIONS (2)
  - RASH [None]
  - ANGIOEDEMA [None]
